FAERS Safety Report 9418903 (Version 5)
Quarter: 2013Q4

REPORT INFORMATION
  Report Type: Spontaneous
  Country: US (occurrence: US)
  Receive Date: 20130725
  Receipt Date: 20131027
  Transmission Date: 20140711
  Serious: Yes (Hospitalization, Other)
  Sender: FDA-Public Use
  Company Number: US-009507513-1307USA010734

PATIENT
  Age: 57 Year
  Sex: Male

DRUGS (4)
  1. PEGINTRON [Suspect]
     Indication: HEPATITIS C
     Dosage: REDIPEN
     Dates: start: 20130710, end: 20131001
  2. REBETOL [Suspect]
     Indication: HEPATITIS C
     Dosage: 600 MG IN THE MORNING AND 400 MG IN THE EVENING
     Route: 048
     Dates: start: 20130710, end: 2013
  3. REBETOL [Suspect]
     Dosage: 600 MG IN THE MORNING AND 200 MG IN THE EVENING
     Route: 048
     Dates: start: 2013, end: 20131001
  4. VICTRELIS [Suspect]
     Indication: HEPATITIS C
     Dosage: UNK
     Route: 048
     Dates: start: 20130813, end: 20130822

REACTIONS (31)
  - Adverse event [Unknown]
  - Anaemia [Unknown]
  - Poor quality sleep [Unknown]
  - Tongue disorder [Unknown]
  - Throat tightness [Unknown]
  - Blood count abnormal [Unknown]
  - Mental impairment [Unknown]
  - Mental disorder [Unknown]
  - Speech disorder [Unknown]
  - Vertigo [Unknown]
  - Transfusion [Unknown]
  - Injection site erythema [Unknown]
  - Injection site warmth [Unknown]
  - Headache [Unknown]
  - Pruritus [Unknown]
  - Rash [Not Recovered/Not Resolved]
  - Pruritus [Not Recovered/Not Resolved]
  - Headache [Recovered/Resolved]
  - Nausea [Unknown]
  - Fatigue [Not Recovered/Not Resolved]
  - Chest pain [Not Recovered/Not Resolved]
  - Dyspnoea [Unknown]
  - Vomiting [Unknown]
  - Dry mouth [Unknown]
  - Red blood cell count decreased [Unknown]
  - Platelet count decreased [Unknown]
  - Delirium [Unknown]
  - Memory impairment [Unknown]
  - Nausea [Unknown]
  - Amnesia [Unknown]
  - Nausea [Unknown]
